FAERS Safety Report 5663741-4 (Version None)
Quarter: 2008Q1

REPORT INFORMATION
  Report Type: 
  Country: None (occurrence: None)
  Receive Date: 20080311
  Receipt Date: 20080226
  Transmission Date: 20080703
  Serious: Yes (Hospitalization)
  Sender: FDA-Public Use
  Company Number: 1-15829921

PATIENT
  Age: 85 Year
  Sex: Male
  Weight: 69.8539 kg

DRUGS (10)
  1. FENTANYL [Suspect]
     Indication: BACK PAIN
     Dosage: 50MCG/HR EVERY 3 DAYS, TRANSDERMAL
     Route: 062
     Dates: start: 20071109
  2. ALLOPURINOL [Concomitant]
  3. SUCRALAFATE [Concomitant]
  4. TRIAMTERENE AND HYDROCHLOROTHIAZIDE [Concomitant]
  5. ACIPHEX [Concomitant]
  6. AMIODARONE HCL [Concomitant]
  7. LEXAPRO [Concomitant]
  8. REGLAN [Concomitant]
  9. FOSAMAX [Concomitant]
  10. PERCOCET [Concomitant]

REACTIONS (9)
  - CARDIAC FAILURE CONGESTIVE [None]
  - CHOLELITHIASIS [None]
  - DEHYDRATION [None]
  - HYPOTENSION [None]
  - MUSCLE ATROPHY [None]
  - MUSCULAR WEAKNESS [None]
  - PANCREATITIS ACUTE [None]
  - PNEUMONIA [None]
  - PULMONARY OEDEMA [None]
